FAERS Safety Report 8837132 (Version 1)
Quarter: 2012Q4

REPORT INFORMATION
  Report Type: Spontaneous
  Country: US (occurrence: None)
  Receive Date: 20121011
  Receipt Date: 20121011
  Transmission Date: 20130627
  Serious: Yes (Other)
  Sender: FDA-Public Use
  Company Number: None

PATIENT
  Sex: Male
  Weight: 24.95 kg

DRUGS (3)
  1. MONTELUKAST [Suspect]
     Dates: start: 20120903, end: 20120908
  2. ALLERGY DROPS [Concomitant]
  3. AZELASTINE NASAL SPRAY [Concomitant]

REACTIONS (3)
  - Urticaria [None]
  - Wheezing [None]
  - Product substitution issue [None]
